FAERS Safety Report 8334422-3 (Version None)
Quarter: 2012Q2

REPORT INFORMATION
  Report Type: 
  Country: None (occurrence: None)
  Receive Date: 20120503
  Receipt Date: 20110621
  Transmission Date: 20120825
  Serious: No
  Sender: FDA-Public Use
  Company Number: US-BAUSCH-2011BL004091

PATIENT
  Age: 34 Year
  Sex: Female

DRUGS (5)
  1. ALBUTEROL [Concomitant]
     Indication: ASTHMA
     Route: 049
  2. ORTHO TRI-CYCLEN [Concomitant]
     Indication: CONTRACEPTION
     Route: 048
  3. GENTEAL [Concomitant]
     Indication: DRY EYE
     Route: 047
  4. LOTEMAX [Suspect]
     Indication: EYE INFLAMMATION
     Route: 047
     Dates: start: 20110620, end: 20110621
  5. ADVAIR DISKUS 100/50 [Concomitant]
     Indication: ASTHMA
     Route: 049

REACTIONS (2)
  - VISION BLURRED [None]
  - IRIS HYPERPIGMENTATION [None]
